FAERS Safety Report 5081579-6 (Version None)
Quarter: 2006Q3

REPORT INFORMATION
  Report Type: 
  Country: None (occurrence: None)
  Receive Date: 20060811
  Receipt Date: 20060726
  Transmission Date: 20061208
  Serious: Yes (Death, Hospitalization)
  Sender: FDA-Public Use
  Company Number: 163-21880-06070068

PATIENT
  Age: 65 Year
  Sex: Male

DRUGS (1)
  1. REVLIMID [Suspect]
     Indication: MYELODYSPLASTIC SYNDROME
     Dosage: 1 IN 1 D, ORAL
     Route: 048
     Dates: start: 20060609, end: 20060617

REACTIONS (7)
  - ANAEMIA [None]
  - CHEST PAIN [None]
  - DISEASE PROGRESSION [None]
  - DYSPNOEA [None]
  - MYELODYSPLASTIC SYNDROME [None]
  - PRURITUS [None]
  - THROMBOCYTOPENIA [None]
